FAERS Safety Report 14313105 (Version 1)
Quarter: 2017Q4

REPORT INFORMATION
  Report Type: Spontaneous
  Country: US (occurrence: US)
  Receive Date: 20171221
  Receipt Date: 20171221
  Transmission Date: 20180321
  Serious: No
  Sender: FDA-Public Use
  Company Number: US-BIOGEN-2017BI00496074

PATIENT
  Age: 37 Year
  Sex: Female

DRUGS (1)
  1. TYSABRI [Suspect]
     Active Substance: NATALIZUMAB
     Indication: MULTIPLE SCLEROSIS
     Route: 065
     Dates: start: 20171207

REACTIONS (9)
  - Fatigue [Not Recovered/Not Resolved]
  - Delusion [Unknown]
  - Vomiting [Not Recovered/Not Resolved]
  - Neck mass [Unknown]
  - Balance disorder [Unknown]
  - Rash macular [Unknown]
  - Dizziness [Not Recovered/Not Resolved]
  - Nausea [Not Recovered/Not Resolved]
  - Skin mass [Unknown]

NARRATIVE: CASE EVENT DATE: 20171207
